FAERS Safety Report 5894790-9 (Version None)
Quarter: 2008Q3

REPORT INFORMATION
  Report Type: 
  Country: None (occurrence: None)
  Receive Date: 20080924
  Receipt Date: 20080618
  Transmission Date: 20090109
  Serious: No
  Sender: FDA-Public Use
  Company Number: US-ASTRAZENECA-2008UW12409

PATIENT
  Age: 55 Year
  Sex: Female

DRUGS (5)
  1. SEROQUEL XR [Suspect]
     Route: 048
  2. EFFEXOR [Concomitant]
  3. ANTIHYPERTENSIVES [Concomitant]
  4. SEROQUEL [Concomitant]
     Dosage: 300 MG
     Route: 048
  5. SEROQUEL [Concomitant]
     Dosage: 300 MG
     Route: 048

REACTIONS (1)
  - SWOLLEN TONGUE [None]
